FAERS Safety Report 11198209 (Version 3)
Quarter: 2015Q4

REPORT INFORMATION
  Report Type: Report from Study
  Country: US (occurrence: US)
  Receive Date: 20150618
  Receipt Date: 20151228
  Transmission Date: 20160304
  Serious: No
  Sender: FDA-Public Use
  Company Number: US-AMGEN-USASL2015058619

PATIENT
  Age: 71 Year
  Sex: Male

DRUGS (1)
  1. ENBREL [Suspect]
     Active Substance: ETANERCEPT
     Indication: PSORIASIS
     Dosage: 50 MG, TWICE A WEEK
     Route: 058
     Dates: start: 20150130, end: 201506

REACTIONS (1)
  - Psoriasis [Not Recovered/Not Resolved]
